APPROVED DRUG PRODUCT: ORAMORPH SR
Active Ingredient: MORPHINE SULFATE
Strength: 100MG
Dosage Form/Route: TABLET, EXTENDED RELEASE;ORAL
Application: N019977 | Product #003
Applicant: XANODYNE PHARMACEUTICALS INC
Approved: Aug 15, 1991 | RLD: No | RS: No | Type: DISCN